FAERS Safety Report 13672528 (Version 1)
Quarter: 2017Q2

REPORT INFORMATION
  Report Type: Spontaneous
  Country: FR (occurrence: FR)
  Receive Date: 20170621
  Receipt Date: 20170621
  Transmission Date: 20170830
  Serious: Yes (Other)
  Sender: FDA-Public Use
  Company Number: FR-BAYER-2017-116394

PATIENT
  Age: 28 Year
  Sex: Female
  Weight: 78 kg

DRUGS (1)
  1. MIRENA [Suspect]
     Active Substance: LEVONORGESTREL
     Indication: CONTRACEPTION
     Dosage: 20 MCG/24HR, CONT
     Route: 015
     Dates: start: 20161126

REACTIONS (11)
  - Formication [Unknown]
  - Vomiting [Unknown]
  - Hypoaesthesia [Unknown]
  - Migraine [Unknown]
  - Weight increased [Unknown]
  - Vertigo [Unknown]
  - Mood altered [Unknown]
  - Palpitations [Unknown]
  - Loss of libido [Unknown]
  - Fatigue [Unknown]
  - Hyperhidrosis [Unknown]

NARRATIVE: CASE EVENT DATE: 20170101
